FAERS Safety Report 6656255-6 (Version None)
Quarter: 2010Q1

REPORT INFORMATION
  Report Type: 
  Country: None (occurrence: None)
  Receive Date: 20100329
  Receipt Date: 20100315
  Transmission Date: 20100710
  Serious: Yes (Other)
  Sender: FDA-Public Use
  Company Number: FR-ELI_LILLY_AND_COMPANY-FR201002000130

PATIENT
  Age: 40 Year
  Sex: Female
  Weight: 61 kg

DRUGS (6)
  1. GEMZAR [Suspect]
     Indication: BREAST CANCER METASTATIC
     Dosage: 1000 MG/M2, ONE ADMINSTRATION/WK DURING 3 WEEKS + 1 WK OF REST (1 CYCLE=4 WKS)
     Route: 042
     Dates: start: 20091028, end: 20100115
  2. PARACETAMOL [Concomitant]
     Indication: PAIN
     Dosage: 1 G TO 2G, DAILY (1/D)
     Route: 048
     Dates: start: 20100108, end: 20100108
  3. FORLAX [Concomitant]
     Indication: CONSTIPATION
     Dosage: UNK, 2/D
     Route: 048
  4. AMOXICILLIN [Concomitant]
     Indication: NASOPHARYNGITIS
     Dosage: UNK, 3/D
     Route: 048
     Dates: start: 20100118, end: 20100121
  5. DIMETANE [Concomitant]
     Indication: NASOPHARYNGITIS
     Dosage: UNK, UNKNOWN
     Route: 048
     Dates: start: 20100118, end: 20100128
  6. KYTRIL [Concomitant]
     Indication: NAUSEA
     Dosage: UNK, 2/D
     Route: 048
     Dates: start: 20100116, end: 20100117

REACTIONS (1)
  - CYTOLYTIC HEPATITIS [None]
